FAERS Safety Report 5650079-4 (Version None)
Quarter: 2008Q1

REPORT INFORMATION
  Report Type: 
  Country: None (occurrence: None)
  Receive Date: 20080303
  Receipt Date: 20080226
  Transmission Date: 20080703
  Serious: Yes (Death, Other)
  Sender: FDA-Public Use
  Company Number: 2008SP004135

PATIENT
  Sex: Male

DRUGS (1)
  1. INTRON A [Suspect]
     Indication: HEPATITIS C
     Dates: end: 19970226

REACTIONS (9)
  - BONE NEOPLASM MALIGNANT [None]
  - BRAIN NEOPLASM MALIGNANT [None]
  - EPILEPSY [None]
  - HEPATIC ENZYME ABNORMAL [None]
  - HEPATIC NEOPLASM MALIGNANT [None]
  - IMMUNODEFICIENCY [None]
  - LIVER DISORDER [None]
  - LIVER TRANSPLANT [None]
  - LUNG NEOPLASM MALIGNANT [None]
